FAERS Safety Report 6255241-8 (Version None)
Quarter: 2009Q3

REPORT INFORMATION
  Report Type: 
  Country: None (occurrence: None)
  Receive Date: 20090702
  Receipt Date: 20090629
  Transmission Date: 20100115
  Serious: Yes (Other)
  Sender: FDA-Public Use
  Company Number: US-ROXANE LABORATORIES, INC.-2009-RO-00623RO

PATIENT
  Age: 17 Year
  Sex: Male

DRUGS (5)
  1. METHOTREXATE SODIUM [Suspect]
     Indication: ACUTE LYMPHOCYTIC LEUKAEMIA
     Route: 037
  2. METHOTREXATE SODIUM [Suspect]
     Route: 042
  3. METHOTREXATE SODIUM [Suspect]
  4. METHOTREXATE SODIUM [Suspect]
     Route: 037
  5. VINCRISTINE [Suspect]
     Indication: ACUTE LYMPHOCYTIC LEUKAEMIA
     Route: 042

REACTIONS (5)
  - DYSARTHRIA [None]
  - FACIAL PALSY [None]
  - HEMIPARESIS [None]
  - PHOTOSENSITIVITY REACTION [None]
  - REVERSIBLE POSTERIOR LEUKOENCEPHALOPATHY SYNDROME [None]
